FAERS Safety Report 15209817 (Version 1)
Quarter: 2018Q3

REPORT INFORMATION
  Report Type: Spontaneous
  Country: US (occurrence: US)
  Receive Date: 20180629
  Receipt Date: 20180629
  Transmission Date: 20181010
  Serious: No
  Sender: FDA-Public Use
  Company Number: None

PATIENT
  Age: 56 Year
  Sex: Female

DRUGS (1)
  1. HUMIRA [Suspect]
     Active Substance: ADALIMUMAB
     Indication: ARTHRITIS
     Dosage: ?          OTHER FREQUENCY:EVERY 14 ;?
     Route: 058
     Dates: start: 20170608, end: 20180601

REACTIONS (4)
  - Eye inflammation [None]
  - Breast mass [None]
  - Condition aggravated [None]
  - Drug effect decreased [None]

NARRATIVE: CASE EVENT DATE: 20180601
